FAERS Safety Report 24052264 (Version 1)
Quarter: 2024Q3

REPORT INFORMATION
  Report Type: Spontaneous
  Country: BR (occurrence: BR)
  Receive Date: 20240704
  Receipt Date: 20240704
  Transmission Date: 20241016
  Serious: Yes (Other)
  Sender: NOVARTIS
  Company Number: BR-002147023-NVSC2024BR136254

PATIENT
  Sex: Female

DRUGS (1)
  1. DIOVAN HCT [Suspect]
     Active Substance: HYDROCHLOROTHIAZIDE\VALSARTAN
     Indication: Product used for unknown indication
     Dosage: UNK (160/25 MG 28 TABLETS)
     Route: 065

REACTIONS (7)
  - Cataract [Not Recovered/Not Resolved]
  - Hypoacusis [Not Recovered/Not Resolved]
  - Blood pressure increased [Recovered/Resolved]
  - Labyrinthitis [Not Recovered/Not Resolved]
  - Depression [Unknown]
  - Illness [Unknown]
  - Product availability issue [Unknown]
